FAERS Safety Report 23104603 (Version 1)
Quarter: 2023Q4

REPORT INFORMATION
  Report Type: Spontaneous
  Country: US (occurrence: None)
  Receive Date: 20231023
  Receipt Date: 20231023
  Transmission Date: 20240109
  Serious: Yes (Hospitalization)
  Sender: FDA-Public Use
  Company Number: None

PATIENT
  Age: 82 Year
  Sex: Male
  Weight: 100 kg

DRUGS (2)
  1. APIXABAN [Suspect]
     Active Substance: APIXABAN
     Dosage: FREQUENCY : TWICE A DAY;?
     Dates: start: 20191101, end: 20230130
  2. WARFARIN [Concomitant]

REACTIONS (8)
  - Gastrointestinal haemorrhage [None]
  - Blood loss anaemia [None]
  - Red blood cell transfusion [None]
  - Faeces discoloured [None]
  - Gastrointestinal disorder [None]
  - Arteriovenous malformation [None]
  - Gastrointestinal angiectasia [None]
  - Therapy interrupted [None]

NARRATIVE: CASE EVENT DATE: 20230130
